FAERS Safety Report 14504611 (Version 1)
Quarter: 2018Q1

REPORT INFORMATION
  Report Type: Spontaneous
  Country: US (occurrence: US)
  Receive Date: 20180208
  Receipt Date: 20180208
  Transmission Date: 20180509
  Serious: No
  Sender: FDA-Public Use
  Company Number: US-JNJFOC-20180109858

PATIENT
  Age: 62 Year
  Sex: Male
  Weight: 68.04 kg

DRUGS (2)
  1. WARFARIN [Concomitant]
     Active Substance: WARFARIN
     Indication: PRODUCT USED FOR UNKNOWN INDICATION
     Route: 065
  2. TYLENOL EXTRA STRENGTH [Suspect]
     Active Substance: ACETAMINOPHEN
     Indication: PRODUCT USED FOR UNKNOWN INDICATION
     Route: 065

REACTIONS (3)
  - Rash [Not Recovered/Not Resolved]
  - Lip injury [Not Recovered/Not Resolved]
  - Lip haemorrhage [Not Recovered/Not Resolved]

NARRATIVE: CASE EVENT DATE: 20180105
